FAERS Safety Report 23429486 (Version 3)
Quarter: 2025Q3

REPORT INFORMATION
  Report Type: Spontaneous
  Country: US (occurrence: US)
  Receive Date: 20240122
  Receipt Date: 20250702
  Transmission Date: 20251021
  Serious: Yes (Other)
  Sender: PFIZER
  Company Number: US-PFIZER INC-2020184929

PATIENT
  Age: 18 Year
  Sex: Male

DRUGS (5)
  1. XELJANZ XR [Suspect]
     Active Substance: TOFACITINIB CITRATE
     Indication: Eye disorder
     Dosage: 11 MG, DAILY
     Dates: start: 202006
  2. XELJANZ XR [Suspect]
     Active Substance: TOFACITINIB CITRATE
     Indication: Stevens-Johnson syndrome
     Dosage: 11 MG PO (PER ORAL) QD (1X/DAY)/11 MG TABLET SR 24 HR
     Route: 048
     Dates: start: 202005, end: 202502
  3. XELJANZ XR [Suspect]
     Active Substance: TOFACITINIB CITRATE
     Indication: Toxic epidermal necrolysis
  4. XELJANZ XR [Suspect]
     Active Substance: TOFACITINIB CITRATE
     Indication: COVID-19
  5. XELJANZ XR [Suspect]
     Active Substance: TOFACITINIB CITRATE
     Indication: Inflammation

REACTIONS (3)
  - Cataract [Unknown]
  - Off label use [Unknown]
  - Drug effective for unapproved indication [Unknown]
